FAERS Safety Report 16574912 (Version 1)
Quarter: 2019Q3

REPORT INFORMATION
  Report Type: Spontaneous
  Country: DE (occurrence: DE)
  Receive Date: 20190715
  Receipt Date: 20190715
  Transmission Date: 20191004
  Serious: Yes (Hospitalization)
  Sender: FDA-Public Use
  Company Number: PHHY2019DE158175

PATIENT
  Age: 61 Year
  Sex: Female
  Weight: 52 kg

DRUGS (10)
  1. IFOSFAMIDE. [Suspect]
     Active Substance: IFOSFAMIDE
     Indication: PRODUCT USED FOR UNKNOWN INDICATION
     Dosage: (5000 MG/M?, 05.08.2017, INJEKTIONS-/INFUSIONSL?SUNG   )
     Route: 042
  2. PANTOPRAZOLE [Concomitant]
     Active Substance: PANTOPRAZOLE
     Indication: PRODUCT USED FOR UNKNOWN INDICATION
     Dosage: (20 MG, 1-0-0, TABLETTEN)
     Route: 048
  3. MAGNESIUM [Concomitant]
     Active Substance: MAGNESIUM
     Indication: PRODUCT USED FOR UNKNOWN INDICATION
     Dosage: 1-1-0, KAUTABLETTEN
     Route: 048
  4. COTRIM FORTE L.U.T. [Concomitant]
     Indication: PRODUCT USED FOR UNKNOWN INDICATION
     Dosage: UNK (800|160 MG, 1-0-1; MO; MI; FR, TABLETTEN)
     Route: 048
  5. CARBOPLATIN. [Suspect]
     Active Substance: CARBOPLATIN
     Indication: PRODUCT USED FOR UNKNOWN INDICATION
     Dosage: (5 AUC, 05.08.2017, INJEKTIONS-/INFUSIONSL?SUNG))
     Route: 042
  6. LEVOTHYROXINE SODIUM. [Concomitant]
     Active Substance: LEVOTHYROXINE SODIUM
     Indication: PRODUCT USED FOR UNKNOWN INDICATION
     Dosage: (75 ?G, 1-0-0, TABLETTEN   )
     Route: 048
  7. FILGRASTIM [Concomitant]
     Active Substance: FILGRASTIM
     Indication: PRODUCT USED FOR UNKNOWN INDICATION
     Dosage: 08.08.2017, INJEKTIONS-/INFUSIONSL?SUNG
     Route: 058
  8. ETOPOSIDE. [Suspect]
     Active Substance: ETOPOSIDE
     Indication: PRODUCT USED FOR UNKNOWN INDICATION
     Dosage: (100 MG/M?, 04.08.2017-06.08.2017, INJEKTIONS-/INFUSIONSL?SUNG)
     Route: 042
  9. MESNA. [Concomitant]
     Active Substance: MESNA
     Indication: PRODUCT USED FOR UNKNOWN INDICATION
     Dosage: (1000 MG/M?, 05.08.2017, INJEKTIONS-/INFUSIONSL?SUNG )
     Route: 042
  10. ONDANSETRON [Concomitant]
     Active Substance: ONDANSETRON
     Indication: PRODUCT USED FOR UNKNOWN INDICATION
     Dosage: (8 MG, 1-0-1; 05.08.2017-08.08.2017, TABLETTEN )
     Route: 048

REACTIONS (4)
  - Headache [Unknown]
  - Nausea [Unknown]
  - Pyrexia [Unknown]
  - Mucosal inflammation [Unknown]
